FAERS Safety Report 20764189 (Version 5)
Quarter: 2022Q4

REPORT INFORMATION
  Report Type: Spontaneous
  Country: US (occurrence: US)
  Receive Date: 20220428
  Receipt Date: 20221004
  Transmission Date: 20230112
  Serious: Yes (Hospitalization, Other)
  Sender: FDA-Public Use
  Company Number: US-PFIZER INC-202200464200

PATIENT
  Age: 61 Year
  Sex: Female

DRUGS (3)
  1. IBRANCE [Suspect]
     Active Substance: PALBOCICLIB
     Indication: Breast cancer female
     Dosage: 75 MG
  2. VITAMIN C [Concomitant]
     Active Substance: ASCORBIC ACID
     Dosage: UNK
  3. MAGNESIUM [Concomitant]
     Active Substance: MAGNESIUM
     Dosage: UNK

REACTIONS (7)
  - Pneumonia [Unknown]
  - COVID-19 [Unknown]
  - Fatigue [Unknown]
  - Sleep apnoea syndrome [Recovering/Resolving]
  - Malaise [Unknown]
  - Full blood count abnormal [Unknown]
  - Bone disorder [Unknown]

NARRATIVE: CASE EVENT DATE: 20220526
